FAERS Safety Report 6445635-X (Version None)
Quarter: 2009Q4

REPORT INFORMATION
  Report Type: 
  Country: None (occurrence: None)
  Receive Date: 20091118
  Receipt Date: 20091118
  Transmission Date: 20100525
  Serious: Yes (Other)
  Sender: FDA-Public Use
  Company Number: None

PATIENT
  Age: 67 Year
  Sex: Female
  Weight: 72.5755 kg

DRUGS (1)
  1. METHYLDOPA [Suspect]
     Indication: HYPERTENSION
     Dosage: 25 MG.  2 PER DAY
     Dates: start: 20090714

REACTIONS (1)
  - HALLUCINATION, VISUAL [None]
